FAERS Safety Report 6334595-8 (Version None)
Quarter: 2009Q3

REPORT INFORMATION
  Report Type: 
  Country: None (occurrence: None)
  Receive Date: 20090831
  Receipt Date: 20090817
  Transmission Date: 20100115
  Serious: Yes (Other)
  Sender: FDA-Public Use
  Company Number: PHHY2009BR35139

PATIENT
  Sex: Male

DRUGS (1)
  1. DICLOFENAC SODIUM [Suspect]
     Indication: INJURY
     Dosage: 70 MG, Q12H
     Route: 048
     Dates: start: 20090812

REACTIONS (9)
  - AGITATION [None]
  - CONVULSION [None]
  - DIZZINESS [None]
  - DROOLING [None]
  - FALL [None]
  - FEELING COLD [None]
  - HEAD INJURY [None]
  - LETHARGY [None]
  - MEMORY IMPAIRMENT [None]
